FAERS Safety Report 7069899-7 (Version None)
Quarter: 2010Q4

REPORT INFORMATION
  Report Type: 
  Country: None (occurrence: None)
  Receive Date: 20101028
  Receipt Date: 20100709
  Transmission Date: 20110411
  Serious: No
  Sender: FDA-Public Use
  Company Number: US-WYE-H16325910

PATIENT
  Age: 75 Year
  Sex: Female
  Weight: 77.18 kg

DRUGS (1)
  1. IBUPROFEN [Suspect]
     Indication: ANALGESIC THERAPY
     Dosage: 8 CAPLETS DAILY
     Route: 048
     Dates: start: 20100628, end: 20100701

REACTIONS (2)
  - OVERDOSE [None]
  - RASH [None]
